FAERS Safety Report 8053139-6 (Version None)
Quarter: 2012Q1

REPORT INFORMATION
  Report Type: 
  Country: None (occurrence: None)
  Receive Date: 20120118
  Receipt Date: 20120105
  Transmission Date: 20120608
  Serious: Yes (Other)
  Sender: FDA-Public Use
  Company Number: DE-UCBSA-048877

PATIENT
  Sex: Female

DRUGS (3)
  1. CERTOLIZUMAB PEGOL [Suspect]
     Indication: RHEUMATOID ARTHRITIS
     Route: 058
     Dates: start: 20100908, end: 20110910
  2. GABAPENTIN [Concomitant]
     Dates: start: 20110523
  3. FOLCUR [Concomitant]
     Indication: DRUG TOXICITY PROPHYLAXIS
     Dosage: 5 MG EVERY WEEK
     Dates: start: 20090921

REACTIONS (1)
  - PSORIASIS [None]
